FAERS Safety Report 18524053 (Version 1)
Quarter: 2020Q4

REPORT INFORMATION
  Report Type: Spontaneous
  Country: US (occurrence: US)
  Receive Date: 20201119
  Receipt Date: 20201119
  Transmission Date: 20210114
  Serious: Yes (Death, Hospitalization, Other)
  Sender: FDA-Public Use
  Company Number: US-PURDUE-USA-2020-0177301

PATIENT
  Sex: Male

DRUGS (1)
  1. OXYCONTIN [Suspect]
     Active Substance: OXYCODONE HYDROCHLORIDE
     Indication: PRODUCT USED FOR UNKNOWN INDICATION
     Dosage: UNK
     Route: 048
     Dates: start: 1996

REACTIONS (6)
  - Hospitalisation [Unknown]
  - Death [Fatal]
  - Cardiac disorder [Unknown]
  - Drug dependence [Unknown]
  - Developmental delay [Unknown]
  - Overdose [Unknown]

NARRATIVE: CASE EVENT DATE: 2006
